FAERS Safety Report 5965835-2 (Version None)
Quarter: 2008Q4

REPORT INFORMATION
  Report Type: 
  Country: None (occurrence: None)
  Receive Date: 20081125
  Receipt Date: 20081121
  Transmission Date: 20090506
  Serious: Yes (Other)
  Sender: FDA-Public Use
  Company Number: US-BIOGENIDEC-2008BI024160

PATIENT
  Age: 59 Year
  Sex: Female

DRUGS (10)
  1. TYSABRI [Suspect]
     Indication: MULTIPLE SCLEROSIS
     Route: 042
     Dates: start: 20080515
  2. KEPPRA [Concomitant]
     Route: 048
     Dates: start: 20080618
  3. ZONEGRAN [Concomitant]
     Route: 048
     Dates: start: 20071128
  4. TOPAMAX [Concomitant]
     Route: 048
     Dates: start: 20071128
  5. TOPAMAX [Concomitant]
     Route: 048
     Dates: start: 20071231
  6. TOPAMAX [Concomitant]
     Route: 048
     Dates: start: 20080827
  7. LISINOPRIL [Concomitant]
     Route: 048
     Dates: start: 19980101
  8. CITALOPRAM HYDROBROMIDE [Concomitant]
     Route: 048
     Dates: start: 20071231
  9. HUMALOG [Concomitant]
  10. ASPIRIN [Concomitant]
     Route: 048

REACTIONS (1)
  - PARTIAL SEIZURES [None]
